FAERS Safety Report 9012504 (Version 1)
Quarter: 2013Q1

REPORT INFORMATION
  Report Type: Spontaneous
  Country: US (occurrence: US)
  Receive Date: 20130114
  Receipt Date: 20130114
  Transmission Date: 20140127
  Serious: No
  Sender: FDA-Public Use
  Company Number: US-PFIZER INC-2013015105

PATIENT
  Age: 79 Year
  Sex: Female
  Weight: 57.6 kg

DRUGS (3)
  1. LYRICA [Suspect]
     Indication: HERPES ZOSTER
     Dosage: 75 MG, 2X/DAY
     Dates: start: 20130107, end: 20130110
  2. VALTREX [Concomitant]
     Dosage: 50 MG, 3X/DAY
  3. DARIFENACIN [Concomitant]
     Indication: BLADDER DISORDER
     Dosage: 7.5 MG, DAILY

REACTIONS (5)
  - Vision blurred [Recovered/Resolved]
  - Confusional state [Recovered/Resolved]
  - Gait disturbance [Recovered/Resolved]
  - Disturbance in attention [Recovered/Resolved]
  - Dizziness [Recovered/Resolved]
